FAERS Safety Report 17095200 (Version 1)
Quarter: 2019Q4

REPORT INFORMATION
  Report Type: Spontaneous
  Country: FR (occurrence: FR)
  Receive Date: 20191130
  Receipt Date: 20191130
  Transmission Date: 20200122
  Serious: Yes (Other)
  Sender: FDA-Public Use
  Company Number: FR-TEVA-2019-FR-1143078

PATIENT
  Age: 59 Year
  Sex: Male

DRUGS (3)
  1. LOXAPAC 50 MG, COMPRIM? PELLICUL? [Interacting]
     Active Substance: LOXAPINE SUCCINATE
     Indication: PSYCHOTIC DISORDER
     Dosage: 50 KU 1 DAYS
     Route: 048
     Dates: start: 20190128
  2. IRBESARTAN. [Suspect]
     Active Substance: IRBESARTAN
     Indication: HYPERTENSION
     Dosage: 150 MG 1 DAYS
     Route: 048
     Dates: start: 20190128
  3. CLOPIXOL 25 MG, COMPRIM? PELLICUL? (ZUCLOPENTHIXOL HYDROCHLORIDE) [Interacting]
     Active Substance: ZUCLOPENTHIXOL HYDROCHLORIDE
     Indication: PSYCHOTIC DISORDER
     Dosage: 50 MG 1 DAYS
     Route: 048
     Dates: start: 20190128

REACTIONS (3)
  - Drug interaction [Unknown]
  - Hypotension [Recovered/Resolved]
  - Malaise [Recovered/Resolved]

NARRATIVE: CASE EVENT DATE: 20190206
